FAERS Safety Report 7634104-7 (Version None)
Quarter: 2011Q3

REPORT INFORMATION
  Report Type: 
  Country: None (occurrence: None)
  Receive Date: 20110725
  Receipt Date: 20110721
  Transmission Date: 20111222
  Serious: Yes (Other)
  Sender: FDA-Public Use
  Company Number: US-PFIZER INC-2011166939

PATIENT
  Sex: Male
  Weight: 75 kg

DRUGS (1)
  1. DILANTIN [Suspect]
     Indication: CONVULSION
     Dosage: 200 MG, DAILY
     Route: 048

REACTIONS (2)
  - DRUG HALF-LIFE REDUCED [None]
  - CONVULSION [None]
